FAERS Safety Report 4407338-2 (Version None)
Quarter: 2004Q3

REPORT INFORMATION
  Report Type: 
  Country: None (occurrence: None)
  Receive Date: 20040723
  Receipt Date: 20040723
  Transmission Date: 20050211
  Serious: Yes (Hospitalization, Other)
  Sender: FDA-Public Use
  Company Number: None

PATIENT
  Age: 64 Year
  Sex: Male
  Weight: 71.7 kg

DRUGS (5)
  1. COUMADIN [Suspect]
     Indication: PULMONARY EMBOLISM
     Dosage: ALTERNATE 5/75 MG DAILY
     Dates: start: 20040320
  2. BACTRIM DS [Suspect]
     Indication: HIV INFECTION
     Dosage: ONE DAILY
  3. DIFLUCAN [Concomitant]
  4. ACYCLOVIR [Concomitant]
  5. FLAGYL [Concomitant]

REACTIONS (3)
  - PERIPHERAL ISCHAEMIA [None]
  - RASH GENERALISED [None]
  - SKIN DISCOLOURATION [None]
